FAERS Safety Report 8309955-6 (Version None)
Quarter: 2012Q2

REPORT INFORMATION
  Report Type: 
  Country: None (occurrence: None)
  Receive Date: 20120423
  Receipt Date: 20120419
  Transmission Date: 20120825
  Serious: No
  Sender: FDA-Public Use
  Company Number: 2012-00109

PATIENT
  Age: 74 Year
  Sex: Female

DRUGS (2)
  1. ZICAM COLD REMEDY PLUS ORAL MIST [Suspect]
     Dosage: ONE DOSE EVERY 3 HOURS
     Dates: start: 20120415, end: 20120418
  2. HYDROCHLOROTHIAZIDE [Concomitant]

REACTIONS (1)
  - AGEUSIA [None]
